FAERS Safety Report 9159010 (Version 3)
Quarter: 2013Q1

REPORT INFORMATION
  Report Type: Spontaneous
  Country: DE (occurrence: None)
  Receive Date: 20130311
  Receipt Date: 20130322
  Transmission Date: 20140127
  Serious: Yes (Death, Hospitalization)
  Sender: FDA-Public Use
  Company Number: SYM-2013-01398

PATIENT
  Age: 73 Year
  Sex: Male

DRUGS (11)
  1. 5 FU [Suspect]
     Indication: COLORECTAL CANCER METASTATIC
     Dosage: 700 MG, EVERY OTHER WEEK, INTRAVENOUS BOLUS
     Route: 040
     Dates: start: 20121127, end: 20121127
  2. IRINOTECAN [Suspect]
     Indication: COLORECTAL CANCER METASTATIC
     Dosage: 200 MG, EVERY OTHER WEEK, INTRAVENOUS BOLUS
     Route: 040
     Dates: start: 20130129, end: 20130129
  3. LEUCOVORIN [Suspect]
     Indication: COLORECTAL CANCER METASTATIC
     Dosage: 200 MG, EVERY OTHER WEEK, INTRAVENOUS BOLUS
     Route: 040
     Dates: start: 20130129, end: 20130129
  4. AFLIBERCEPT [Suspect]
     Indication: COLORECTAL CANCER METASTATIC
     Dosage: 284 MG, EVERY OTHER WEEK, INTRAVENOUS (NOT OTHERWISE SPECIFIED)
     Route: 042
     Dates: start: 20130129, end: 20130129
  5. DEXAMEHTASONE (DEXAMETHASONE) (DEXAMETHASONE) [Concomitant]
  6. BEZAFIBRATE (BEZAFIBRATE) (BEZAFIBRATE) [Concomitant]
  7. PANTOPRAZOLE (PANTOPRAZOLE) (PANTOPRAZOLE) [Concomitant]
  8. ALLOPURINOL (ALLOPURINOL) (ALLOPURINOL) [Concomitant]
  9. FILGRASTIM (FILGRASTIM) (FILGRASTIM) [Concomitant]
  10. G-CSF (GRANULOCYTE COLONY STIMULATING FACTOR) (GRANULOCYTE COLONY STIMULATING FACTOR) [Concomitant]
  11. EXFORGE (DIOVAN AMLO) (AMLODIPINE BESILATE) (VALSARTAN) [Concomitant]

REACTIONS (8)
  - Pneumonia [None]
  - Sepsis [None]
  - General physical health deterioration [None]
  - Pancytopenia [None]
  - Diarrhoea [None]
  - Renal failure acute [None]
  - Systemic inflammatory response syndrome [None]
  - Disseminated intravascular coagulation [None]
